FAERS Safety Report 13268795 (Version 3)
Quarter: 2017Q1

REPORT INFORMATION
  Report Type: Spontaneous
  Country: US (occurrence: US)
  Receive Date: 20170224
  Receipt Date: 20170321
  Transmission Date: 20170428
  Serious: Yes (Death, Life-Threatening, Hospitalization, Disabling)
  Sender: FDA-Public Use
  Company Number: US-CELGENEUS-USA-2017026776

PATIENT
  Age: 63 Year
  Sex: Male
  Weight: 71 kg

DRUGS (45)
  1. DEXAMETHASONE IV [Suspect]
     Active Substance: DEXAMETHASONE
     Indication: PREMEDICATION
     Dosage: 40 MILLIGRAM
     Route: 041
     Dates: start: 20150911
  2. AMITRIPTYLINE HCL [Concomitant]
     Active Substance: AMITRIPTYLINE
     Indication: PAIN PROPHYLAXIS
     Dosage: 300 MILLIGRAM
     Route: 048
  3. AMITRIPTYLINE HCL [Concomitant]
     Active Substance: AMITRIPTYLINE
     Dosage: 50 MILLIGRAM
     Route: 048
  4. FLUOXETINE HCL [Concomitant]
     Active Substance: FLUOXETINE HYDROCHLORIDE
     Indication: DEPRESSION
     Dosage: 120 MILLIGRAM
     Route: 048
  5. SYMBICORT [Concomitant]
     Active Substance: BUDESONIDE\FORMOTEROL FUMARATE DIHYDRATE
     Indication: PROPHYLAXIS
     Route: 055
  6. FAMOTIDINE. [Concomitant]
     Active Substance: FAMOTIDINE
     Indication: GASTROOESOPHAGEAL REFLUX DISEASE
     Dosage: 20 MILLIGRAM
     Route: 041
     Dates: start: 20150901
  7. PROCHLORPERAZINE. [Concomitant]
     Active Substance: PROCHLORPERAZINE
     Indication: BARRETT^S OESOPHAGUS
     Route: 048
     Dates: start: 20150911
  8. ONDANSETRON [Concomitant]
     Active Substance: ONDANSETRON
     Indication: INFUSION RELATED REACTION
     Dosage: 16 MILLIGRAM
     Route: 048
     Dates: start: 20150911
  9. REVLIMID [Suspect]
     Active Substance: LENALIDOMIDE
     Indication: PLASMA CELL MYELOMA
     Dosage: 25 MILLIGRAM
     Route: 048
     Dates: start: 20150911
  10. ALLOPURINOL. [Concomitant]
     Active Substance: ALLOPURINOL
     Indication: GOUT
     Dosage: 42.8571 MILLIGRAM
     Route: 048
     Dates: start: 201509
  11. AMLODIPINE BESYLATE. [Concomitant]
     Active Substance: AMLODIPINE BESYLATE
     Indication: HYPERTENSION
     Dosage: 10 MILLIGRAM
     Route: 048
  12. LEVETIRACETAM. [Concomitant]
     Active Substance: LEVETIRACETAM
     Indication: PAIN PROPHYLAXIS
  13. INSULIN DETEMIR [Concomitant]
     Active Substance: INSULIN DETEMIR
     Dosage: 3 MILLILITER
     Route: 058
     Dates: start: 20150918
  14. LISINOPRIL/HCTZ [Concomitant]
     Active Substance: HYDROCHLOROTHIAZIDE\LISINOPRIL
     Indication: HYPERTENSION
     Dosage: 20 MILLIGRAM
     Route: 048
  15. ESOMEPRAZOLE MAGNESIUM. [Concomitant]
     Active Substance: ESOMEPRAZOLE MAGNESIUM
     Indication: GASTROOESOPHAGEAL REFLUX DISEASE
     Dosage: 40 MILLIGRAM
     Route: 048
  16. INSULIN LISPRO [Concomitant]
     Active Substance: INSULIN LISPRO
     Indication: BARRETT^S OESOPHAGUS
  17. HCTZ [Concomitant]
     Active Substance: HYDROCHLOROTHIAZIDE
     Indication: HYPERTENSION
     Dosage: 20 MILLIGRAM
     Route: 048
     Dates: start: 20150918
  18. METRONIDAZOLE. [Concomitant]
     Active Substance: METRONIDAZOLE
     Indication: ANTIBIOTIC THERAPY
     Dosage: 750 MILLIGRAM
     Route: 048
     Dates: start: 20150731
  19. CHLORHEXIDINE GLUCONATE. [Concomitant]
     Active Substance: CHLORHEXIDINE GLUCONATE
     Indication: PRODUCT USED FOR UNKNOWN INDICATION
     Dosage: 45 MILLILITER
     Route: 048
  20. OXYCODONE HYDROCHLORIDE. [Concomitant]
     Active Substance: OXYCODONE HYDROCHLORIDE
     Indication: PAIN
     Dosage: 3 MILLILITER
     Route: 048
  21. DARATUMUMAB [Suspect]
     Active Substance: DARATUMUMAB
     Indication: PLASMA CELL MYELOMA
     Dosage: 1760 MILLIGRAM
     Route: 065
     Dates: start: 20150911
  22. FLUDROCORTISONE ACETATE. [Concomitant]
     Active Substance: FLUDROCORTISONE ACETATE
     Indication: STEROID THERAPY
     Dosage: .1 MILLIGRAM
     Route: 048
  23. ESOMEPRAZOLE MAGNESIUM. [Concomitant]
     Active Substance: ESOMEPRAZOLE MAGNESIUM
     Indication: BARRETT^S OESOPHAGUS
  24. BACTRIM [Concomitant]
     Active Substance: SULFAMETHOXAZOLE\TRIMETHOPRIM
     Indication: INFECTION
     Route: 048
     Dates: start: 20150911
  25. ALLOPURINOL. [Concomitant]
     Active Substance: ALLOPURINOL
     Dosage: 42.8571 MILLIGRAM
     Route: 048
     Dates: start: 20150918
  26. GLUCOSE [Concomitant]
     Active Substance: DEXTROSE
     Indication: TYPE 2 DIABETES MELLITUS
     Dosage: 15 GRAM
     Route: 065
     Dates: start: 20150918
  27. ATORVASTATIN [Concomitant]
     Active Substance: ATORVASTATIN
     Indication: HYPERTENSION
     Dosage: 10 MILLIGRAM
     Route: 048
     Dates: start: 20150918
  28. LEVETIRACETAM. [Concomitant]
     Active Substance: LEVETIRACETAM
     Indication: CONVULSION PROPHYLAXIS
     Dosage: 1000 MILLIGRAM
     Route: 048
     Dates: start: 20150902
  29. INSULIN DETEMIR [Concomitant]
     Active Substance: INSULIN DETEMIR
     Indication: TYPE 2 DIABETES MELLITUS
     Dosage: 3 MILLILITER
     Route: 058
     Dates: start: 20150918
  30. ACICLOVIR [Concomitant]
     Active Substance: ACYCLOVIR
     Indication: PROPHYLAXIS
     Dosage: 800 MILLIGRAM
     Route: 048
     Dates: start: 20150911
  31. PROCHLORPERAZINE. [Concomitant]
     Active Substance: PROCHLORPERAZINE
     Indication: NAUSEA
  32. GLUCOSE [Concomitant]
     Active Substance: DEXTROSE
     Indication: BARRETT^S OESOPHAGUS
  33. FUROSEMIDE. [Concomitant]
     Active Substance: FUROSEMIDE
     Indication: HYPERTENSION
     Dosage: 20 MILLIGRAM
     Route: 005
     Dates: start: 20150918
  34. DEXAMETHASONE IV [Suspect]
     Active Substance: DEXAMETHASONE
     Indication: PLASMA CELL MYELOMA
     Dosage: 10 MILLIGRAM
     Route: 041
     Dates: start: 20150911, end: 20150918
  35. HEPARIN SODIUM. [Concomitant]
     Active Substance: HEPARIN SODIUM
     Indication: PRODUCT USED FOR UNKNOWN INDICATION
     Dosage: 3 MILLILITER
     Route: 065
  36. OMEPRAZOLE. [Concomitant]
     Active Substance: OMEPRAZOLE
     Indication: PRODUCT USED FOR UNKNOWN INDICATION
     Dosage: 3 MILLILITER
     Route: 048
  37. SIMVASTATIN. [Concomitant]
     Active Substance: SIMVASTATIN
     Indication: PRODUCT USED FOR UNKNOWN INDICATION
     Dosage: 20 MILLIGRAM
     Route: 048
  38. INSULIN LISPRO [Concomitant]
     Active Substance: INSULIN LISPRO
     Indication: TYPE 2 DIABETES MELLITUS
     Dosage: 3 MILLILITER
     Route: 058
  39. BUPROPION HCL [Concomitant]
     Active Substance: BUPROPION HYDROCHLORIDE
     Indication: PRODUCT USED FOR UNKNOWN INDICATION
     Dosage: 300 MILLIGRAM
     Route: 048
  40. FLUOXETINE HCL [Concomitant]
     Active Substance: FLUOXETINE HYDROCHLORIDE
     Dosage: 120 MILLIGRAM
     Route: 048
  41. CIPROFLOXACIN. [Concomitant]
     Active Substance: CIPROFLOXACIN
     Indication: CONSTIPATION
     Dosage: 20 MILLIGRAM
     Route: 048
  42. VELCADE [Concomitant]
     Active Substance: BORTEZOMIB
     Indication: PLASMA CELL MYELOMA
     Dosage: 20 MILLIGRAM
     Route: 058
     Dates: start: 20150904
  43. PROCHLORPERAZINE. [Concomitant]
     Active Substance: PROCHLORPERAZINE
     Indication: PREMEDICATION
     Dosage: 5 MILLIGRAM
     Route: 048
     Dates: start: 20150731
  44. LISINOPRIL. [Concomitant]
     Active Substance: LISINOPRIL
     Indication: HYPERTENSION
     Dosage: 20 MILLIGRAM
     Route: 048
     Dates: start: 20150918
  45. DIAZEPAM. [Concomitant]
     Active Substance: DIAZEPAM
     Indication: ANXIETY
     Dosage: 5 MILLIGRAM
     Route: 048
     Dates: start: 20150819

REACTIONS (2)
  - Subdural haematoma [Fatal]
  - Subdural haematoma [Recovered/Resolved]

NARRATIVE: CASE EVENT DATE: 20150918
